FAERS Safety Report 18648311 (Version 1)
Quarter: 2020Q4

REPORT INFORMATION
  Report Type: Spontaneous
  Country: US (occurrence: US)
  Receive Date: 20201221
  Receipt Date: 20201221
  Transmission Date: 20210114
  Serious: Yes (Other)
  Sender: FDA-Public Use
  Company Number: None

PATIENT
  Age: 33 Year
  Sex: Male

DRUGS (1)
  1. AMANTADINE (AMANTADINE 129MG TAB, SA) [Suspect]
     Active Substance: AMANTADINE
     Dates: start: 20201022

REACTIONS (1)
  - Seizure [None]

NARRATIVE: CASE EVENT DATE: 20201022
